FAERS Safety Report 8856655 (Version 1)
Quarter: 2012Q4

REPORT INFORMATION
  Report Type: Spontaneous
  Country: US (occurrence: None)
  Receive Date: 20121024
  Receipt Date: 20121024
  Transmission Date: 20130627
  Serious: Yes (Hospitalization)
  Sender: FDA-Public Use
  Company Number: None

PATIENT
  Age: 53 Year
  Sex: Male
  Weight: 70.31 kg

DRUGS (1)
  1. METHYLPREDNISOLONE [Suspect]

REACTIONS (2)
  - Chest pain [None]
  - Asthenia [None]
